FAERS Safety Report 16295122 (Version 1)
Quarter: 2019Q2

REPORT INFORMATION
  Report Type: Spontaneous
  Country: US (occurrence: US)
  Receive Date: 20190509
  Receipt Date: 20190509
  Transmission Date: 20190711
  Serious: No
  Sender: FDA-Public Use
  Company Number: US-ROCHE-2223687

PATIENT
  Sex: Female
  Weight: 68.1 kg

DRUGS (2)
  1. ESBRIET [Suspect]
     Active Substance: PIRFENIDONE
     Indication: IDIOPATHIC PULMONARY FIBROSIS
     Dosage: THREE PILLS
     Route: 065
  2. ESBRIET [Suspect]
     Active Substance: PIRFENIDONE
     Dosage: TWO PILLS
     Route: 065
     Dates: end: 20181126

REACTIONS (5)
  - Nausea [Unknown]
  - Gastrooesophageal reflux disease [Unknown]
  - Headache [Recovered/Resolved]
  - Dyspepsia [Unknown]
  - Fatigue [Unknown]
